FAERS Safety Report 13863089 (Version 2)
Quarter: 2017Q3

REPORT INFORMATION
  Report Type: Report from Study
  Country: CA (occurrence: CA)
  Receive Date: 20170814
  Receipt Date: 20170918
  Transmission Date: 20171127
  Serious: Yes (Other)
  Sender: FDA-Public Use
  Company Number: CA-ROCHE-1953979

PATIENT
  Age: 39 Year
  Sex: Female

DRUGS (3)
  1. SYNTHROID [Concomitant]
     Active Substance: LEVOTHYROXINE SODIUM
  2. ZELBORAF [Suspect]
     Active Substance: VEMURAFENIB
     Indication: METASTATIC MALIGNANT MELANOMA
     Dosage: ON HOLD
     Route: 048
     Dates: start: 20170530, end: 2017
  3. COTELLIC [Suspect]
     Active Substance: COBIMETINIB
     Indication: METASTATIC MALIGNANT MELANOMA
     Dosage: ON HOLD
     Route: 048
     Dates: start: 20170530, end: 2017

REACTIONS (2)
  - Drug intolerance [Unknown]
  - Rash macular [Unknown]

NARRATIVE: CASE EVENT DATE: 20170616
